FAERS Safety Report 6664768-6 (Version None)
Quarter: 2010Q1

REPORT INFORMATION
  Report Type: 
  Country: None (occurrence: None)
  Receive Date: 20100330
  Receipt Date: 20100315
  Transmission Date: 20100710
  Serious: Yes (Life-Threatening, Hospitalization)
  Sender: FDA-Public Use
  Company Number: PD-122

PATIENT
  Age: 47 Year
  Sex: Female

DRUGS (3)
  1. ZANTAC [Suspect]
     Indication: ANAESTHESIA
     Dosage: 50 MG, 1X INTRAVENOUS
     Route: 042
  2. ZANTAC [Suspect]
     Indication: PREMEDICATION
     Dosage: 50 MG, 1X INTRAVENOUS
     Route: 042
  3. 2000MG METILPREDNISOLONE INTRAVENOUSLY [Concomitant]

REACTIONS (3)
  - ANAPHYLACTIC REACTION [None]
  - INFUSION RELATED REACTION [None]
  - INFUSION SITE ERYTHEMA [None]
